FAERS Safety Report 7748852-1 (Version None)
Quarter: 2011Q3

REPORT INFORMATION
  Report Type: 
  Country: None (occurrence: None)
  Receive Date: 20110913
  Receipt Date: 20110913
  Transmission Date: 20111222
  Serious: No
  Sender: FDA-Public Use
  Company Number: None

PATIENT
  Age: 62 Year
  Sex: Male
  Weight: 58.1 kg

DRUGS (2)
  1. HEPARIN SODIUM 1,000 UNITS IN DEXTROSE 5% [Suspect]
     Dosage: IV
     Dates: start: 20110520, end: 20110523
  2. ASPIRIN [Suspect]
     Dosage: MG EVERY DAY PO
     Route: 048

REACTIONS (5)
  - EPISTAXIS [None]
  - MASS [None]
  - WEIGHT DECREASED [None]
  - HEADACHE [None]
  - SINUS DISORDER [None]
